FAERS Safety Report 18560120 (Version 1)
Quarter: 2020Q4

REPORT INFORMATION
  Report Type: Spontaneous
  Country: CN (occurrence: CN)
  Receive Date: 20201130
  Receipt Date: 20201130
  Transmission Date: 20210114
  Serious: Yes (Other)
  Sender: FDA-Public Use
  Company Number: CN-BAXTER-2020BAX023835

PATIENT
  Age: 42 Year
  Sex: Female
  Weight: 57 kg

DRUGS (4)
  1. 0.9% SODIUM CHLORIDE INJECTION [Suspect]
     Active Substance: SODIUM CHLORIDE
     Indication: MEDICATION DILUTION
     Dosage: XUESAITONG INJECTION 200 MG + 0.9% NS 250 ML
     Route: 041
     Dates: start: 20201022, end: 20201022
  2. 0.9% SODIUM CHLORIDE INJECTION [Suspect]
     Active Substance: SODIUM CHLORIDE
     Dosage: REDUCED GLUTATHIONE FOR INJECTION 2.4 G + 0.9% NS 250 ML, IVGTT, QD
     Route: 041
     Dates: start: 20201022, end: 20201022
  3. 20% MANNITOL INJECTION [Suspect]
     Active Substance: MANNITOL
     Indication: CERVICAL VERTEBRAL FRACTURE
     Route: 041
     Dates: start: 20201011, end: 20201022
  4. ATOMOLAN [Suspect]
     Active Substance: GLUTATHIONE
     Indication: CERVICAL VERTEBRAL FRACTURE
     Dosage: REDUCED GLUTATHIONE FOR INJECTION 2.4 G + 0.9% NS 250 ML, IVGTT, QD
     Route: 041
     Dates: start: 20201011, end: 20201022

REACTIONS (2)
  - Pruritus [Recovered/Resolved]
  - Rash maculo-papular [Recovering/Resolving]

NARRATIVE: CASE EVENT DATE: 20201022
